FAERS Safety Report 24209984 (Version 2)
Quarter: 2025Q2

REPORT INFORMATION
  Report Type: Spontaneous
  Country: FR (occurrence: FR)
  Receive Date: 20240814
  Receipt Date: 20250512
  Transmission Date: 20250716
  Serious: Yes (Other)
  Sender: SANDOZ
  Company Number: FR-AMGEN-FRASP2024154158

PATIENT
  Age: 52 Year
  Sex: Male

DRUGS (2)
  1. ADALIMUMAB [Suspect]
     Active Substance: ADALIMUMAB
     Indication: Osteomyelitis
     Dosage: 40 MILLIGRAM, Q2WK (80 MG ON WEEK 1, THEN 40 MG EVERY 2  WEEKS;)
     Route: 058
  2. ADALIMUMAB [Suspect]
     Active Substance: ADALIMUMAB
     Route: 058

REACTIONS (4)
  - Pancreatitis acute [Unknown]
  - Cholelithiasis [Unknown]
  - Drug effective for unapproved indication [Unknown]
  - Off label use [Unknown]
